FAERS Safety Report 5888320-5 (Version None)
Quarter: 2008Q3

REPORT INFORMATION
  Report Type: 
  Country: None (occurrence: None)
  Receive Date: 20080916
  Receipt Date: 20080901
  Transmission Date: 20090109
  Serious: Yes (Hospitalization)
  Sender: FDA-Public Use
  Company Number: DSA_32368_2008

PATIENT
  Age: 94 Year
  Sex: Female

DRUGS (10)
  1. ENALAPRIL MALEATE [Suspect]
     Indication: HYPERTENSION
     Dosage: (20 MG QD ORAL)
     Route: 048
     Dates: end: 20080727
  2. AMILORIDE HCL AND HYDROCHLOROTHIAZIDE [Suspect]
     Indication: HYPERTENSION
     Dosage: (5/50 MG ORAL)
     Route: 048
     Dates: end: 20080727
  3. ACEBUTOLOL [Concomitant]
  4. LERCANIDIPINE HYDROCHLORIDE [Concomitant]
  5. LORAZEPAM [Concomitant]
  6. NITROGLYCERIN [Concomitant]
  7. POLYETHYLENE GLYCOL [Concomitant]
  8. RABEPRAZOLE SODIUM [Concomitant]
  9. TRIMEPRAZINE TARTRATE [Concomitant]
  10. TRIMETAZIDINE HYDROCHLORIDE [Concomitant]

REACTIONS (3)
  - CONFUSIONAL STATE [None]
  - FALL [None]
  - HYPONATRAEMIA [None]
